FAERS Safety Report 10316129 (Version 1)
Quarter: 2014Q3

REPORT INFORMATION
  Report Type: Spontaneous
  Country: US (occurrence: US)
  Receive Date: 20140719
  Receipt Date: 20140719
  Transmission Date: 20150326
  Serious: Yes (Hospitalization)
  Sender: FDA-Public Use
  Company Number: US-ABBVIE-14P-163-1259538-00

PATIENT
  Age: 51 Year
  Sex: Male

DRUGS (11)
  1. DEPAKENE [Suspect]
     Active Substance: VALPROIC ACID
     Indication: CONVULSION
     Dates: start: 201406
  2. PROTONIX [Concomitant]
     Active Substance: PANTOPRAZOLE SODIUM
     Indication: PRODUCT USED FOR UNKNOWN INDICATION
  3. VIMPAT [Concomitant]
     Active Substance: LACOSAMIDE
     Indication: PRODUCT USED FOR UNKNOWN INDICATION
  4. XANAX [Suspect]
     Active Substance: ALPRAZOLAM
     Indication: PRODUCT USED FOR UNKNOWN INDICATION
  5. TRAZODONE [Concomitant]
     Active Substance: TRAZODONE HYDROCHLORIDE
     Indication: PRODUCT USED FOR UNKNOWN INDICATION
  6. KEPPRA [Concomitant]
     Active Substance: LEVETIRACETAM
     Indication: PRODUCT USED FOR UNKNOWN INDICATION
  7. SEROQUEL [Concomitant]
     Active Substance: QUETIAPINE FUMARATE
     Indication: PRODUCT USED FOR UNKNOWN INDICATION
  8. DEPAKOTE [Suspect]
     Active Substance: DIVALPROEX SODIUM
     Indication: CONVULSION
     Dosage: WEANED DOWN/TAPERED OFF
     Dates: start: 201406
  9. KLONOPIN [Concomitant]
     Active Substance: CLONAZEPAM
     Indication: PRODUCT USED FOR UNKNOWN INDICATION
  10. GABAPENTIN. [Suspect]
     Active Substance: GABAPENTIN
     Indication: PRODUCT USED FOR UNKNOWN INDICATION
     Dates: end: 201406
  11. ATIVAN [Concomitant]
     Active Substance: LORAZEPAM
     Indication: PRODUCT USED FOR UNKNOWN INDICATION

REACTIONS (18)
  - Restlessness [Recovered/Resolved]
  - Photophobia [Recovered/Resolved]
  - Logorrhoea [Recovered/Resolved]
  - Insomnia [Recovered/Resolved]
  - Personality change [Recovered/Resolved]
  - Crying [Recovered/Resolved]
  - Hallucination [Recovered/Resolved]
  - Anxiety [Recovered/Resolved]
  - Parosmia [Recovered/Resolved]
  - Dysphemia [Recovered/Resolved]
  - Anger [Recovered/Resolved]
  - Micturition urgency [Recovered/Resolved]
  - Agitation [Recovered/Resolved]
  - Hyperacusis [Recovered/Resolved]
  - Chest discomfort [Recovered/Resolved]
  - Paranoia [Recovering/Resolving]
  - Panic reaction [Recovered/Resolved]
  - Heart rate increased [Not Recovered/Not Resolved]

NARRATIVE: CASE EVENT DATE: 201406
